FAERS Safety Report 9130318 (Version 2)
Quarter: 2013Q1

REPORT INFORMATION
  Report Type: Spontaneous
  Country: US (occurrence: US)
  Receive Date: 20130301
  Receipt Date: 20130304
  Transmission Date: 20140127
  Serious: No
  Sender: FDA-Public Use
  Company Number: US-009507513-1302USA011054

PATIENT
  Age: 67 Year
  Sex: Female

DRUGS (11)
  1. JANUVIA [Suspect]
     Indication: TYPE 2 DIABETES MELLITUS
     Dosage: UNK, QD
     Route: 048
     Dates: start: 20130104
  2. WELLBUTRIN [Concomitant]
  3. LISINOPRIL [Concomitant]
  4. MENTAX [Concomitant]
  5. ARMOUR THYROID TABLETS [Concomitant]
  6. ALLOPURINOL [Concomitant]
  7. ASPIRIN [Concomitant]
  8. CRESTOR [Concomitant]
  9. ALENDRONATE SODIUM [Concomitant]
  10. LANTUS [Concomitant]
  11. HUMALOG [Concomitant]

REACTIONS (5)
  - Influenza like illness [Not Recovered/Not Resolved]
  - Joint swelling [Not Recovered/Not Resolved]
  - Pyrexia [Not Recovered/Not Resolved]
  - Rhinorrhoea [Not Recovered/Not Resolved]
  - Oropharyngeal pain [Not Recovered/Not Resolved]
